FAERS Safety Report 12544022 (Version 3)
Quarter: 2017Q2

REPORT INFORMATION
  Report Type: Spontaneous
  Country: JP (occurrence: JP)
  Receive Date: 20160711
  Receipt Date: 20170629
  Transmission Date: 20170830
  Serious: Yes (Other)
  Sender: FDA-Public Use
  Company Number: JP-GLAXOSMITHKLINE-JP2016JPN095405

PATIENT
  Age: 82 Year
  Sex: Female

DRUGS (1)
  1. VALTREX [Suspect]
     Active Substance: VALACYCLOVIR HYDROCHLORIDE
     Indication: HERPES ZOSTER
     Dosage: 250 MG, QD
     Route: 048
     Dates: start: 20160630, end: 20160702

REACTIONS (2)
  - Toxic encephalopathy [Recovered/Resolved]
  - Altered state of consciousness [Recovering/Resolving]
